FAERS Safety Report 7401846 (Version 2)
Quarter: 2013Q4

REPORT INFORMATION
  Report Type: Spontaneous
  Country: US (occurrence: US)
  Receive Date: 20100527
  Receipt Date: 20131106
  Transmission Date: 20140711
  Serious: Yes (Hospitalization)
  Sender: FDA-Public Use
  Company Number: US-ELI_LILLY_AND_COMPANY-US201005005680

PATIENT
  Age: 8 Week
  Sex: Male

DRUGS (1)
  1. HUMALOG LISPRO [Suspect]

REACTIONS (2)
  - Intentional drug misuse [Recovered/Resolved]
  - Hypoglycaemia [Recovered/Resolved]
